FAERS Safety Report 12843363 (Version 2)
Quarter: 2016Q4

REPORT INFORMATION
  Report Type: Spontaneous
  Country: ZA (occurrence: ZA)
  Receive Date: 20161013
  Receipt Date: 20161206
  Transmission Date: 20170207
  Serious: Yes (Other)
  Sender: FDA-Public Use
  Company Number: ALCN2016ZA006833

PATIENT
  Sex: Female

DRUGS (2)
  1. AZOPTIC [Suspect]
     Active Substance: BRINZOLAMIDE
     Indication: GLAUCOMA
     Dosage: UNK
     Route: 047
     Dates: start: 201501, end: 201607
  2. GANFORT [Concomitant]
     Active Substance: BIMATOPROST\TIMOLOL
     Indication: GLAUCOMA
     Dosage: UNK
     Route: 047
     Dates: start: 201501

REACTIONS (14)
  - Eyelid pain [Recovered/Resolved]
  - Ocular hyperaemia [Recovered/Resolved]
  - Eye infection [Recovering/Resolving]
  - Eye movement disorder [Recovering/Resolving]
  - Eyelids pruritus [Not Recovered/Not Resolved]
  - Eye discharge [Recovered/Resolved]
  - Dermatitis [Recovered/Resolved]
  - Eye allergy [Recovered/Resolved]
  - Vision blurred [Recovering/Resolving]
  - Eye pruritus [Recovered/Resolved]
  - Eyelid oedema [Not Recovered/Not Resolved]
  - Eye pain [Not Recovered/Not Resolved]
  - Erythema of eyelid [Not Recovered/Not Resolved]
  - Stomatitis [Recovered/Resolved]

NARRATIVE: CASE EVENT DATE: 2015
